FAERS Safety Report 10086581 (Version 2)
Quarter: 2014Q2

REPORT INFORMATION
  Report Type: Spontaneous
  Country: US (occurrence: US)
  Receive Date: 20140418
  Receipt Date: 20140418
  Transmission Date: 20141212
  Serious: Yes (Death, Hospitalization, Other)
  Sender: FDA-Public Use
  Company Number: US-ACTELION-A-NJ2014-96458

PATIENT
  Age: 21 Year
  Sex: Female

DRUGS (4)
  1. TRACLEER [Suspect]
     Indication: PULMONARY ARTERIAL HYPERTENSION
     Dosage: UNK
     Route: 048
     Dates: end: 20140404
  2. SILDENAFIL [Concomitant]
  3. XARELTO [Concomitant]
  4. REMODULIN [Concomitant]

REACTIONS (6)
  - Right ventricular failure [Fatal]
  - Pulmonary arterial hypertension [Fatal]
  - Ovarian operation [Unknown]
  - Ovarian cyst [Unknown]
  - Catheter site discharge [Unknown]
  - Catheter site erythema [Unknown]
